FAERS Safety Report 8559627-8 (Version None)
Quarter: 2012Q3

REPORT INFORMATION
  Report Type: 
  Country: None (occurrence: None)
  Receive Date: 20120802
  Receipt Date: 20120726
  Transmission Date: 20120928
  Serious: Yes (Life-Threatening, Hospitalization)
  Sender: FDA-Public Use
  Company Number: JP-009507513-1207JPN011006

PATIENT

DRUGS (3)
  1. DIPRIVAN [Concomitant]
     Indication: INDUCTION AND MAINTENANCE OF ANAESTHESIA
     Dosage: DOSAGE IS UNCERTAIN DURING A DAY.
     Route: 042
     Dates: start: 20120724
  2. FENTANYL CITRATE [Concomitant]
     Dosage: DOSAGE IS UNCERTAIN DURING A DAY.
     Route: 065
     Dates: start: 20120724
  3. ROCURONIUM BROMIDE [Suspect]
     Dosage: DOSAGE IS UNCERTAIN DURING A DAY.
     Route: 042
     Dates: start: 20120724

REACTIONS (2)
  - ATELECTASIS [None]
  - ANAPHYLACTIC REACTION [None]
